FAERS Safety Report 7211697-5 (Version None)
Quarter: 2011Q1

REPORT INFORMATION
  Report Type: 
  Country: None (occurrence: None)
  Receive Date: 20110105
  Receipt Date: 20110103
  Transmission Date: 20110831
  Serious: Yes (Other)
  Sender: FDA-Public Use
  Company Number: PT-PFIZER INC-2011000320

PATIENT
  Age: 35 Year
  Sex: Female
  Weight: 58 kg

DRUGS (19)
  1. HIDANTINA [Suspect]
     Indication: POST-TRAUMATIC EPILEPSY
     Route: 048
     Dates: start: 20101208, end: 20101209
  2. PHENYTOIN [Concomitant]
     Dosage: 250 MG/5ML, 3X/DAY
     Route: 042
     Dates: start: 20101117, end: 20101208
  3. FUROSEMIDE [Concomitant]
     Dosage: 20 MG, 2X/DAY
     Route: 042
  4. FLUCONAZOLE [Suspect]
     Indication: ANTIFUNGAL PROPHYLAXIS
     Dosage: 400 MG, 1X/DAY
     Route: 042
     Dates: start: 20101130, end: 20101208
  5. DIAZEPAM [Concomitant]
     Dosage: 10 MG, AS NEEDED
     Route: 042
  6. MEROPENEM TRIHYDRATE [Suspect]
     Indication: ANTIBIOTIC PROPHYLAXIS
     Route: 042
     Dates: start: 20101117, end: 20101208
  7. ENOXAPARIN SODIUM [Concomitant]
     Route: 058
  8. PETHIDINE [Concomitant]
  9. ATRACURIUM [Concomitant]
  10. RISPERIDONE [Suspect]
     Indication: DEPRESSION
     Dosage: 1 MG, 1X/DAY
     Route: 048
     Dates: end: 20101215
  11. PROPOFOL [Concomitant]
  12. METOCLOPRAMIDE [Concomitant]
     Dosage: 10 MG, 3X/DAY
     Route: 042
  13. FENTANYL [Concomitant]
  14. ZYVOX [Suspect]
     Indication: ANTIBIOTIC PROPHYLAXIS
     Dosage: 1200 MG, 1X/DAY
     Route: 042
     Dates: start: 20101117, end: 20101208
  15. RANITIDINE [Concomitant]
     Dosage: 50 MG, UNK
     Route: 042
  16. PARACETAMOL [Concomitant]
     Dosage: 1000 MG, AS NEEDED
     Route: 042
  17. HALOPERIDOL [Concomitant]
     Dosage: UNK MG, UNK
     Route: 042
  18. NORADRENALINE [Concomitant]
  19. REMIFENTANIL [Concomitant]

REACTIONS (2)
  - RASH [None]
  - URTICARIA [None]
